FAERS Safety Report 9764040 (Version 1)
Quarter: 2013Q4

REPORT INFORMATION
  Report Type: Spontaneous
  Country: US (occurrence: US)
  Receive Date: 20131216
  Receipt Date: 20131216
  Transmission Date: 20140711
  Serious: Yes (Hospitalization)
  Sender: FDA-Public Use
  Company Number: US-AMGEN-USASP2013087532

PATIENT
  Age: 44 Year
  Sex: Female

DRUGS (1)
  1. ENBREL [Suspect]
     Indication: RHEUMATOID ARTHRITIS
     Dosage: 50 MG, QWK
     Route: 065
     Dates: start: 201309

REACTIONS (19)
  - Hypertension [Not Recovered/Not Resolved]
  - Dizziness [Not Recovered/Not Resolved]
  - Hypoaesthesia [Not Recovered/Not Resolved]
  - Arthralgia [Not Recovered/Not Resolved]
  - Chest pain [Not Recovered/Not Resolved]
  - Condition aggravated [Recovered/Resolved]
  - Pain in extremity [Recovered/Resolved]
  - Local swelling [Recovered/Resolved]
  - Swelling face [Recovered/Resolved]
  - Contusion [Not Recovered/Not Resolved]
  - Joint swelling [Recovered/Resolved]
  - Oral disorder [Recovered/Resolved]
  - Injection site pain [Recovered/Resolved]
  - Oral herpes [Recovered/Resolved]
  - Injection site reaction [Not Recovered/Not Resolved]
  - Injection site erythema [Recovered/Resolved]
  - Injection site swelling [Recovered/Resolved]
  - Injection site warmth [Recovered/Resolved]
  - Injection site bruising [Not Recovered/Not Resolved]
